FAERS Safety Report 6255956-1 (Version None)
Quarter: 2009Q3

REPORT INFORMATION
  Report Type: 
  Country: None (occurrence: None)
  Receive Date: 20090706
  Receipt Date: 20090622
  Transmission Date: 20100115
  Serious: Yes (Hospitalization)
  Sender: FDA-Public Use
  Company Number: JP-BRISTOL-MYERS SQUIBB COMPANY-14410088

PATIENT
  Age: 27 Year
  Sex: Male

DRUGS (6)
  1. ABILIFY [Suspect]
     Indication: SCHIZOPHRENIA
     Dosage: 3MG/D:25MAR-7APR08 14D 6MG/D ON 8APR-6MAY08 29D 12MG/D ON 7-29MAY08 23D
     Route: 048
     Dates: start: 20080325, end: 20080529
  2. LINTON [Concomitant]
     Dates: start: 20080226, end: 20080529
  3. LEXOTAN [Concomitant]
     Dates: start: 20080226, end: 20080529
  4. TRIHEXYPHENIDYL HCL [Concomitant]
     Dosage: FORMULATION: TABLET.
     Dates: start: 20080226, end: 20080529
  5. RILMAZAFONE [Concomitant]
     Dates: start: 20080226, end: 20080529
  6. NITRAZEPAM [Concomitant]
     Dosage: FORMULATION:TABLET
     Dates: start: 20080226, end: 20080529

REACTIONS (1)
  - PSYCHIATRIC SYMPTOM [None]
